FAERS Safety Report 15455574 (Version 2)
Quarter: 2018Q4

REPORT INFORMATION
  Report Type: Report from Study
  Country: None (occurrence: ES)
  Receive Date: 20181002
  Receipt Date: 20181027
  Transmission Date: 20190204
  Serious: Yes (Other)
  Sender: FDA-Public Use
  Company Number: ES-ABBVIE-18S-144-2490697-00

PATIENT
  Sex: Female
  Weight: 70 kg

DRUGS (2)
  1. DUODOPA [Suspect]
     Active Substance: CARBIDOPA\LEVODOPA
     Dosage: A COMPLETE TUBE REPLACEMENT WAS PERFORMED AND DUODOPA WAS RESTARTED TO DUODENUM.
     Route: 050
     Dates: start: 201809
  2. DUODOPA [Suspect]
     Active Substance: CARBIDOPA\LEVODOPA
     Indication: PARKINSON^S DISEASE
     Route: 050
     Dates: start: 20180130, end: 201809

REACTIONS (19)
  - Stoma site reaction [Not Recovered/Not Resolved]
  - Dizziness [Not Recovered/Not Resolved]
  - Dysphagia [Not Recovered/Not Resolved]
  - Stoma site erythema [Recovered/Resolved]
  - Stoma site discharge [Recovered/Resolved]
  - Generalised oedema [Not Recovered/Not Resolved]
  - Hypotension [Not Recovered/Not Resolved]
  - On and off phenomenon [Unknown]
  - Fungal oesophagitis [Recovering/Resolving]
  - Fungal infection [Recovering/Resolving]
  - Dehydration [Unknown]
  - Consciousness fluctuating [Not Recovered/Not Resolved]
  - Hypotonia [Not Recovered/Not Resolved]
  - Malnutrition [Unknown]
  - Asthenia [Not Recovered/Not Resolved]
  - Poor personal hygiene [Unknown]
  - Polyuria [Unknown]
  - Confusional state [Not Recovered/Not Resolved]
  - Gastrointestinal stoma complication [Not Recovered/Not Resolved]

NARRATIVE: CASE EVENT DATE: 2018
